FAERS Safety Report 13537785 (Version 24)
Quarter: 2020Q1

REPORT INFORMATION
  Report Type: Report from Study
  Country: CA (occurrence: CA)
  Receive Date: 20170511
  Receipt Date: 20200318
  Transmission Date: 20200409
  Serious: Yes (Hospitalization, Disabling, Other)
  Sender: FDA-Public Use
  Company Number: CA-BRISTOL-MYERS SQUIBB COMPANY-BMS-2016-104592

PATIENT
  Age: 34 Year
  Sex: Female

DRUGS (16)
  1. ABATACEPT [Suspect]
     Active Substance: ABATACEPT
     Indication: PSORIATIC ARTHROPATHY
     Dosage: 750 MG, Q4WK
     Route: 042
     Dates: start: 2012
  2. AMITRIPTYLINE [Concomitant]
     Active Substance: AMITRIPTYLINE
     Indication: PRODUCT USED FOR UNKNOWN INDICATION
     Dosage: 10 MILLIGRAM, PRN
     Route: 048
  3. REACTIN [DICLOFENAC SODIUM] [Concomitant]
     Indication: PRODUCT USED FOR UNKNOWN INDICATION
     Route: 065
  4. ABATACEPT [Suspect]
     Active Substance: ABATACEPT
     Indication: RHEUMATOID ARTHRITIS
     Dosage: 750 MG, Q4WK
     Route: 042
     Dates: start: 20080610
  5. FERROUS SULFATE. [Concomitant]
     Active Substance: FERROUS SULFATE
     Indication: PRODUCT USED FOR UNKNOWN INDICATION
     Route: 065
  6. FER [ASCORBIC ACID;FERROUS CHLORIDE] [Concomitant]
     Indication: PRODUCT USED FOR UNKNOWN INDICATION
     Route: 065
  7. XANAX [Concomitant]
     Active Substance: ALPRAZOLAM
     Indication: PRODUCT USED FOR UNKNOWN INDICATION
     Dosage: UNK
     Route: 065
  8. CALCIUM [Concomitant]
     Active Substance: CALCIUM
     Indication: PRODUCT USED FOR UNKNOWN INDICATION
     Route: 065
  9. CARBOCAL [Concomitant]
     Active Substance: CALCIUM CARBONATE
     Indication: PRODUCT USED FOR UNKNOWN INDICATION
     Route: 065
  10. PREDNISONE. [Concomitant]
     Active Substance: PREDNISONE
     Indication: PRODUCT USED FOR UNKNOWN INDICATION
     Route: 065
  11. TYLENOL [Concomitant]
     Active Substance: ACETAMINOPHEN
     Indication: PRODUCT USED FOR UNKNOWN INDICATION
     Dosage: UNK
     Route: 065
  12. MOTRIN [Concomitant]
     Active Substance: IBUPROFEN
     Indication: PRODUCT USED FOR UNKNOWN INDICATION
     Route: 065
  13. NAPROXEN. [Concomitant]
     Active Substance: NAPROXEN
     Indication: PRODUCT USED FOR UNKNOWN INDICATION
     Route: 065
  14. ROBAXACET [Concomitant]
     Active Substance: ACETAMINOPHEN\METHOCARBAMOL
     Indication: PRODUCT USED FOR UNKNOWN INDICATION
     Route: 065
  15. IRON [Concomitant]
     Active Substance: IRON
     Indication: PRODUCT USED FOR UNKNOWN INDICATION
     Dosage: 300 MILLIGRAM, ^DIE^
     Route: 048
  16. ABATACEPT [Suspect]
     Active Substance: ABATACEPT
     Indication: PRODUCT USED FOR UNKNOWN INDICATION
     Dosage: 750 MILLIGRAM, Q4WK
     Route: 042
     Dates: start: 20080610

REACTIONS (38)
  - Burning sensation [Recovering/Resolving]
  - Pain in extremity [Recovered/Resolved]
  - Anaemia [Not Recovered/Not Resolved]
  - Infusion site oedema [Unknown]
  - Pain [Unknown]
  - Musculoskeletal stiffness [Recovering/Resolving]
  - Haemoglobin decreased [Unknown]
  - Oropharyngeal discomfort [Unknown]
  - Dyspnoea exertional [Unknown]
  - Insomnia [Unknown]
  - Vaginal infection [Recovering/Resolving]
  - Back pain [Recovered/Resolved]
  - Nasopharyngitis [Recovering/Resolving]
  - Productive cough [Recovering/Resolving]
  - Rosacea [Recovered/Resolved]
  - Erythema [Recovering/Resolving]
  - Fatigue [Not Recovered/Not Resolved]
  - Headache [Unknown]
  - Migraine [Recovering/Resolving]
  - Malaise [Not Recovered/Not Resolved]
  - Fall [Recovering/Resolving]
  - Dry skin [Recovering/Resolving]
  - Cardiovascular disorder [Recovering/Resolving]
  - Ecchymosis [Unknown]
  - Skin exfoliation [Unknown]
  - Vision blurred [Unknown]
  - Influenza [Unknown]
  - Arthralgia [Unknown]
  - Ear pain [Recovering/Resolving]
  - Contusion [Unknown]
  - Nasal congestion [Recovering/Resolving]
  - Viral infection [Unknown]
  - Acne [Recovering/Resolving]
  - Infusion site pain [Unknown]
  - Encephalitis [Unknown]
  - Sinusitis [Unknown]
  - Poor venous access [Not Recovered/Not Resolved]
  - Neck pain [Recovering/Resolving]

NARRATIVE: CASE EVENT DATE: 20170330
